FAERS Safety Report 10064748 (Version 1)
Quarter: 2014Q2

REPORT INFORMATION
  Report Type: Spontaneous
  Country: US (occurrence: None)
  Receive Date: 20140407
  Receipt Date: 20140407
  Transmission Date: 20141212
  Serious: Yes (Hospitalization)
  Sender: FDA-Public Use
  Company Number: None

PATIENT
  Age: 75 Year
  Sex: Male
  Weight: 84.3 kg

DRUGS (8)
  1. DOCETAXEL [Suspect]
     Indication: PROSTATE CANCER
     Dosage: 74MG/KG IV Q21D
     Route: 042
     Dates: start: 20131220
  2. LUPRON [Concomitant]
  3. CALCIUM CARBONATE [Concomitant]
  4. DECADRON [Concomitant]
  5. MARINOL [Concomitant]
  6. ZOFRAN [Concomitant]
  7. ZYLOPRIM [Concomitant]
  8. LYCOPENE [Suspect]
     Indication: PROSTATE CANCER
     Route: 048
     Dates: start: 20131205

REACTIONS (3)
  - Haematuria [None]
  - Drug dose omission [None]
  - Haemoglobin decreased [None]
